FAERS Safety Report 7236346-1 (Version None)
Quarter: 2011Q1

REPORT INFORMATION
  Report Type: 
  Country: None (occurrence: None)
  Receive Date: 20110120
  Receipt Date: 20110110
  Transmission Date: 20110831
  Serious: Yes (Other)
  Sender: FDA-Public Use
  Company Number: BR-ALLERGAN-1012311US

PATIENT
  Age: 74 Year
  Sex: Male

DRUGS (5)
  1. UNOPROST [Concomitant]
     Indication: BENIGN PROSTATIC HYPERPLASIA
  2. LUMIGAN [Suspect]
     Indication: GLAUCOMA
     Dosage: 1 GTT, QD
     Route: 047
     Dates: start: 20100101
  3. LATANOPROST [Concomitant]
     Indication: OCULAR HYPERTENSION
  4. ATENOLOL [Concomitant]
     Indication: HYPERTENSION
     Dosage: 25 MG, QD
  5. CAPTOPRIL [Concomitant]
     Indication: HYPERTENSION
     Dosage: 25 MG, QD

REACTIONS (1)
  - BLINDNESS [None]
